FAERS Safety Report 8528650-1 (Version None)
Quarter: 2012Q3

REPORT INFORMATION
  Report Type: 
  Country: None (occurrence: None)
  Receive Date: 20120716
  Receipt Date: 20120716
  Transmission Date: 20120928
  Serious: Yes (Death, Other)
  Sender: FDA-Public Use
  Company Number: None

PATIENT
  Age: 16 Year
  Sex: Female
  Weight: 57.1532 kg

DRUGS (1)
  1. DESOGESTREL AND ETHINYL ESTRADIOL [Suspect]
     Indication: CONTRACEPTION
     Dosage: 28 PILLS DAILY PO
     Route: 048
     Dates: start: 20100623, end: 20100816

REACTIONS (2)
  - THROMBOSIS [None]
  - PULMONARY EMBOLISM [None]
